FAERS Safety Report 23470326 (Version 1)
Quarter: 2024Q1

REPORT INFORMATION
  Report Type: Spontaneous
  Country: US (occurrence: None)
  Receive Date: 20240201
  Receipt Date: 20240201
  Transmission Date: 20240410
  Serious: Yes (Life-Threatening, Disabling)
  Sender: FDA-Public Use
  Company Number: None

PATIENT
  Age: 54 Year
  Sex: Female
  Weight: 99 kg

DRUGS (3)
  1. LIPITOR [Suspect]
     Active Substance: ATORVASTATIN CALCIUM
     Indication: Blood cholesterol increased
     Dosage: 1 TABLET AAT BEDTIME
     Route: 048
     Dates: start: 20221013, end: 20240125
  2. ACIPHEX [Concomitant]
     Active Substance: RABEPRAZOLE SODIUM
  3. ESTRACE [Concomitant]
     Active Substance: ESTRADIOL

REACTIONS (23)
  - Dizziness [None]
  - Epistaxis [None]
  - Neuropathy peripheral [None]
  - Periorbital swelling [None]
  - Headache [None]
  - Malaise [None]
  - Asthenia [None]
  - Tinnitus [None]
  - Vision blurred [None]
  - Libido decreased [None]
  - Depression [None]
  - Arthralgia [None]
  - Back pain [None]
  - Decreased appetite [None]
  - Fatigue [None]
  - Asthenia [None]
  - Loss of personal independence in daily activities [None]
  - Near death experience [None]
  - Disturbance in attention [None]
  - Depression [None]
  - Memory impairment [None]
  - Suicidal ideation [None]
  - Therapy cessation [None]

NARRATIVE: CASE EVENT DATE: 20240125
